FAERS Safety Report 8809266 (Version 3)
Quarter: 2013Q3

REPORT INFORMATION
  Report Type: Report from Study
  Country: JP (occurrence: JP)
  Receive Date: 20120926
  Receipt Date: 20130906
  Transmission Date: 20140515
  Serious: Yes (Other)
  Sender: FDA-Public Use
  Company Number: JP-VERTEX PHARMACEUTICAL INC.-AE-2012-007343

PATIENT
  Age: 63 Year
  Sex: Female

DRUGS (13)
  1. VX-950 (TELAPREVIR) [Suspect]
     Indication: CHRONIC HEPATITIS C
     Dosage: 1500 MG, QD
     Route: 048
     Dates: start: 20120327, end: 20120619
  2. REBETOL [Suspect]
     Indication: CHRONIC HEPATITIS C
     Dosage: 600 MG, QD
     Route: 048
     Dates: start: 20120327, end: 20120416
  3. REBETOL [Suspect]
     Dosage: 400 MG, QD
     Route: 048
     Dates: start: 20120417, end: 20120430
  4. REBETOL [Suspect]
     Dosage: 200 MG, QD
     Route: 048
     Dates: start: 20120501, end: 20120703
  5. REBETOL [Suspect]
     Dosage: 300 MG, QD
     Route: 048
     Dates: start: 20120704, end: 20120717
  6. REBETOL [Suspect]
     Dosage: 400 MG, QD
     Route: 048
     Dates: start: 20120718, end: 20120731
  7. REBETOL [Suspect]
     Dosage: 500 MG, QD
     Route: 048
     Dates: start: 20120801, end: 20120814
  8. REBETOL [Suspect]
     Dosage: 600 MG, QD
     Route: 048
     Dates: start: 20120815, end: 20120911
  9. PEGINTRON [Suspect]
     Indication: CHRONIC HEPATITIS C
     Dosage: 1.5 ?G/KG, QW
     Route: 058
     Dates: start: 20120327, end: 20120911
  10. VIVIANT [Concomitant]
     Dosage: 20 MG, QD
     Route: 048
     Dates: start: 20120327
  11. XYZAL [Concomitant]
     Dosage: 10 MG, QD
     Route: 048
     Dates: start: 20120327, end: 20120911
  12. SELBEX [Concomitant]
     Dosage: 1.5 G, QD
     Route: 048
     Dates: start: 20120327, end: 20120911
  13. OMEPRAL [Concomitant]
     Dosage: 20 MG, QD
     Route: 048
     Dates: start: 20120402

REACTIONS (1)
  - White blood cell count decreased [Recovered/Resolved]
